FAERS Safety Report 9753631 (Version 1)
Quarter: 2013Q4

REPORT INFORMATION
  Report Type: Report from Study
  Country: BR (occurrence: BR)
  Receive Date: 20131213
  Receipt Date: 20131213
  Transmission Date: 20140711
  Serious: Yes (Other)
  Sender: FDA-Public Use
  Company Number: PHHY2013BR146139

PATIENT
  Sex: Female
  Weight: 58 kg

DRUGS (3)
  1. EXFORGE HCT [Suspect]
     Indication: HYPERTENSION
     Dosage: 1 DF(160/5/12.5MG), QD(IN THE MORNING)
     Route: 048
     Dates: end: 201311
  2. PURAN T4 [Concomitant]
     Indication: THYROID DISORDER
     Dosage: UNK UKN, UNK
  3. ATENOLOL [Concomitant]
     Indication: TACHYCARDIA
     Dosage: UNK UKN, UNK
     Dates: start: 2009

REACTIONS (8)
  - Sjogren^s syndrome [Recovering/Resolving]
  - Condition aggravated [Recovering/Resolving]
  - Dry skin [Recovering/Resolving]
  - Dry mouth [Recovering/Resolving]
  - Dry eye [Recovering/Resolving]
  - Dehydration [Recovering/Resolving]
  - Blood potassium decreased [Recovering/Resolving]
  - Pollakiuria [Recovering/Resolving]
